FAERS Safety Report 23667458 (Version 2)
Quarter: 2024Q2

REPORT INFORMATION
  Report Type: Spontaneous
  Country: JP (occurrence: JP)
  Receive Date: 20240325
  Receipt Date: 20240408
  Transmission Date: 20240716
  Serious: Yes (Hospitalization, Other)
  Sender: FDA-Public Use
  Company Number: JP-KYOWAKIRIN-2024KK005018

PATIENT
  Age: 8 Decade
  Sex: Male

DRUGS (3)
  1. PEGFILGRASTIM [Suspect]
     Active Substance: PEGFILGRASTIM
     Indication: Colony stimulating factor therapy
     Dosage: 3.6 MG
     Route: 058
     Dates: start: 20230316
  2. CABAZITAXEL [Suspect]
     Active Substance: CABAZITAXEL
     Indication: Prostate cancer
     Dosage: 25 MG/M2
     Route: 065
     Dates: start: 20230314
  3. CABAZITAXEL [Suspect]
     Active Substance: CABAZITAXEL
     Dosage: 20 MG/M2
     Route: 065
     Dates: start: 20230314

REACTIONS (1)
  - Febrile neutropenia [Recovered/Resolved]

NARRATIVE: CASE EVENT DATE: 20230320
